FAERS Safety Report 5905755-2 (Version None)
Quarter: 2008Q4

REPORT INFORMATION
  Report Type: 
  Country: None (occurrence: None)
  Receive Date: 20081002
  Receipt Date: 20080908
  Transmission Date: 20090506
  Serious: Yes (Hospitalization, Other)
  Sender: FDA-Public Use
  Company Number: AU-NOVOPROD-279260

PATIENT
  Sex: Male

DRUGS (2)
  1. PENMIX 30 PENFILL [Suspect]
     Indication: DIABETES MELLITUS
     Dates: end: 20080908
  2. PREDNISONE [Concomitant]

REACTIONS (5)
  - CHOKING SENSATION [None]
  - DRY MOUTH [None]
  - FLATULENCE [None]
  - GASTRIC ULCER [None]
  - TACHYCARDIA [None]
